FAERS Safety Report 15939368 (Version 1)
Quarter: 2019Q1

REPORT INFORMATION
  Report Type: Spontaneous
  Country: BR (occurrence: BR)
  Receive Date: 20190208
  Receipt Date: 20190208
  Transmission Date: 20190417
  Serious: Yes (Other)
  Sender: FDA-Public Use
  Company Number: BR-SA-2019SA034612

PATIENT
  Sex: Female

DRUGS (1)
  1. STILNOX [Suspect]
     Active Substance: ZOLPIDEM TARTRATE
     Indication: POOR QUALITY SLEEP
     Dosage: 2 DF, UNK
     Route: 065
     Dates: start: 2016

REACTIONS (8)
  - Sleep disorder [Unknown]
  - Product use issue [Unknown]
  - Feeling abnormal [Unknown]
  - Nasal congestion [Unknown]
  - Pain [Unknown]
  - Insomnia [Unknown]
  - Intentional product misuse [Unknown]
  - Spinal fracture [Unknown]

NARRATIVE: CASE EVENT DATE: 2016
